FAERS Safety Report 13561814 (Version 1)
Quarter: 2017Q2

REPORT INFORMATION
  Report Type: Spontaneous
  Country: US (occurrence: US)
  Receive Date: 20170518
  Receipt Date: 20170518
  Transmission Date: 20170830
  Serious: No
  Sender: FDA-Public Use
  Company Number: US-TOLMAR, INC.-TOLG20170199

PATIENT
  Sex: Female
  Weight: 68.1 kg

DRUGS (2)
  1. ERYTHROMYCIN AND BENZOYL PEROXIDE [Suspect]
     Active Substance: BENZOYL PEROXIDE\ERYTHROMYCIN
     Indication: ACNE
     Dosage: 3% / 5%
     Route: 061
  2. ERYTHROMYCIN AND BENZOYL PEROXIDE [Suspect]
     Active Substance: BENZOYL PEROXIDE\ERYTHROMYCIN
     Indication: SEBORRHOEA

REACTIONS (2)
  - Drug ineffective [Not Recovered/Not Resolved]
  - Maternal exposure timing unspecified [None]
